FAERS Safety Report 5338352-0 (Version None)
Quarter: 2007Q2

REPORT INFORMATION
  Report Type: 
  Country: None (occurrence: None)
  Receive Date: 20070530
  Receipt Date: 20070518
  Transmission Date: 20071010
  Serious: Yes (Other)
  Sender: FDA-Public Use
  Company Number: JP-ROCHE-491985

PATIENT
  Age: 11 Year
  Sex: Male
  Weight: 29 kg

DRUGS (5)
  1. TAMIFLU [Suspect]
     Dosage: FORM: DRY SYRUP.
     Route: 048
     Dates: start: 20070318, end: 20070319
  2. TOMIRON [Concomitant]
     Route: 048
     Dates: start: 20070319, end: 20070321
  3. MEDICON [Concomitant]
     Route: 048
     Dates: start: 20070319, end: 20070321
  4. CALONAL [Concomitant]
     Dosage: TAKEN AS NEEDED.
     Route: 048
  5. MEVALOTIN [Concomitant]
     Route: 048
     Dates: start: 20070319, end: 20070321

REACTIONS (1)
  - AGITATION [None]
